FAERS Safety Report 7992464-1 (Version None)
Quarter: 2011Q4

REPORT INFORMATION
  Report Type: 
  Country: None (occurrence: None)
  Receive Date: 20111219
  Receipt Date: 20111207
  Transmission Date: 20120403
  Serious: Yes (Hospitalization)
  Sender: FDA-Public Use
  Company Number: PHHY2011NO106780

PATIENT
  Sex: Male

DRUGS (3)
  1. CLOZAPINE [Suspect]
     Indication: SCHIZOPHRENIA, PARANOID TYPE
     Dosage: UNK UKN, UNK
     Dates: end: 20110515
  2. LITHIONIT [Concomitant]
  3. CLOZAPINE [Suspect]
     Dosage: 500 MG, DAILY
     Dates: start: 20111207, end: 20111207

REACTIONS (5)
  - PSYCHOTIC DISORDER [None]
  - ABDOMINAL DISTENSION [None]
  - ABSCESS [None]
  - ANTIPSYCHOTIC DRUG LEVEL BELOW THERAPEUTIC [None]
  - ILEUS PARALYTIC [None]
